FAERS Safety Report 7967985-8 (Version None)
Quarter: 2011Q4

REPORT INFORMATION
  Report Type: 
  Country: None (occurrence: None)
  Receive Date: 20111209
  Receipt Date: 20111205
  Transmission Date: 20120403
  Serious: Yes (Other)
  Sender: FDA-Public Use
  Company Number: IT-ROXANE LABORATORIES, INC.-2011-RO-01748RO

PATIENT
  Age: 67 Year
  Sex: Female

DRUGS (4)
  1. IRBESARTAN [Suspect]
     Indication: GLOMERULONEPHRITIS MEMBRANOPROLIFERATIVE
  2. MYCOPHENOLATE MOFETIL [Suspect]
     Indication: GLOMERULONEPHRITIS MEMBRANOPROLIFERATIVE
     Dosage: 1000 MG
  3. PEGINTERFERON ALFA-2A [Suspect]
     Indication: GLOMERULONEPHRITIS MEMBRANOPROLIFERATIVE
  4. RAMIPRIL [Suspect]
     Indication: GLOMERULONEPHRITIS MEMBRANOPROLIFERATIVE

REACTIONS (1)
  - HEPATITIS C RNA INCREASED [None]
